FAERS Safety Report 4423308-2 (Version None)
Quarter: 2004Q3

REPORT INFORMATION
  Report Type: 
  Country: None (occurrence: None)
  Receive Date: 20040811
  Receipt Date: 20040802
  Transmission Date: 20050211
  Serious: Yes (Other)
  Sender: FDA-Public Use
  Company Number: 368027

PATIENT
  Age: 77 Year
  Sex: Male

DRUGS (2)
  1. DILATREND [Suspect]
     Indication: DRUG USE FOR UNKNOWN INDICATION
     Dosage: 6.25MG TWICE PER DAY
     Route: 048
     Dates: start: 20040408, end: 20040506
  2. XALATAN [Suspect]

REACTIONS (3)
  - EYE REDNESS [None]
  - VISION BLURRED [None]
  - VISUAL ACUITY REDUCED [None]
